FAERS Safety Report 12433700 (Version 1)
Quarter: 2016Q2

REPORT INFORMATION
  Report Type: Spontaneous
  Country: MY (occurrence: MY)
  Receive Date: 20160603
  Receipt Date: 20160603
  Transmission Date: 20160815
  Serious: Yes (Other)
  Sender: FDA-Public Use
  Company Number: MY-BAYER-2016-100678

PATIENT
  Age: 59 Year
  Sex: Male

DRUGS (13)
  1. NEXAVAR FILM-COATED TABLETS 200MG [Suspect]
     Active Substance: SORAFENIB
     Dosage: 400 MG, BID
     Route: 048
     Dates: start: 20150126, end: 2015
  2. COVERSYL [Concomitant]
     Active Substance: PERINDOPRIL
     Dosage: 8 MG, QD (DAILY DOSE)
  3. PRAZOSIN [Concomitant]
     Active Substance: PRAZOSIN
     Dosage: 1 MG, QD (ONCE DAILY)
  4. HUMULIN N [INSULIN HUMAN] [Concomitant]
     Route: 058
  5. NEXAVAR FILM-COATED TABLETS 200MG [Suspect]
     Active Substance: SORAFENIB
     Dosage: 400 MG, QD (DAILY DOSE)
     Route: 048
     Dates: start: 2015, end: 2015
  6. SIMVASTATIN. [Concomitant]
     Active Substance: SIMVASTATIN
     Dosage: 20 MG, QD (DAILY DOSE)
  7. NEXAVAR FILM-COATED TABLETS 200MG [Suspect]
     Active Substance: SORAFENIB
     Dosage: 400 MG, BID
     Route: 048
     Dates: start: 2015, end: 2015
  8. NEXAVAR FILM-COATED TABLETS 200MG [Suspect]
     Active Substance: SORAFENIB
     Dosage: 400 MG, QD (DAILY DOSE)
     Route: 048
     Dates: start: 2015, end: 2015
  9. NEXAVAR FILM-COATED TABLETS 200MG [Suspect]
     Active Substance: SORAFENIB
     Dosage: 400 MG, QD (DAILY DOSE)
     Route: 048
     Dates: start: 2015, end: 2015
  10. NEXAVAR FILM-COATED TABLETS 200MG [Suspect]
     Active Substance: SORAFENIB
     Dosage: 400 MG, QD (DAILY DOSE)
     Route: 048
     Dates: start: 20150910
  11. NEXAVAR FILM-COATED TABLETS 200MG [Suspect]
     Active Substance: SORAFENIB
     Dosage: UNK (INCREASED DOSE TO 400MG OD AND 600MG EOD DOSE)
     Route: 048
     Dates: start: 2015
  12. HUMULIN R [Concomitant]
     Active Substance: INSULIN HUMAN
     Route: 058
  13. AMLODIPINE [Concomitant]
     Active Substance: AMLODIPINE BESYLATE
     Dosage: 10 MG, QD

REACTIONS (10)
  - Wound [Recovered/Resolved]
  - Mouth ulceration [None]
  - Hypertension [Recovering/Resolving]
  - Pain in extremity [None]
  - Arthralgia [None]
  - Pyrexia [None]
  - Diabetic foot [Recovered/Resolved]
  - Palmar-plantar erythrodysaesthesia syndrome [None]
  - Gingival bleeding [Recovered/Resolved]
  - Palmar-plantar erythrodysaesthesia syndrome [Recovering/Resolving]

NARRATIVE: CASE EVENT DATE: 2015
